FAERS Safety Report 13689117 (Version 1)
Quarter: 2017Q2

REPORT INFORMATION
  Report Type: Spontaneous
  Country: US (occurrence: US)
  Receive Date: 20170624
  Receipt Date: 20170624
  Transmission Date: 20170830
  Serious: Yes (Disabling, Other)
  Sender: FDA-Public Use
  Company Number: None

PATIENT
  Age: 50 Year
  Sex: Female
  Weight: 105.7 kg

DRUGS (12)
  1. MULTI VITAMINS [Concomitant]
     Active Substance: VITAMINS
  2. PRAMIPEXOLE. [Suspect]
     Active Substance: PRAMIPEXOLE
     Indication: RESTLESS LEGS SYNDROME
     Dosage: ?          OTHER STRENGTH:MG;QUANTITY:30 TABLET(S);?
     Route: 048
     Dates: start: 20170414, end: 20170607
  3. VYVANSE [Concomitant]
     Active Substance: LISDEXAMFETAMINE DIMESYLATE
  4. PERCOCET [Concomitant]
     Active Substance: ACETAMINOPHEN\OXYCODONE HYDROCHLORIDE
  5. OMEPRAZOLE DR (PRILOSEC) [Concomitant]
  6. GUANFACINE HCL ER (INTUNIV ER) [Concomitant]
  7. TUMS [Concomitant]
     Active Substance: CALCIUM CARBONATE
  8. SERTRALINE HCL (ZOLOFT) [Concomitant]
  9. TYLENOL [Concomitant]
     Active Substance: ACETAMINOPHEN
  10. MELOXICAM. [Concomitant]
     Active Substance: MELOXICAM
  11. SYNTHROID [Concomitant]
     Active Substance: LEVOTHYROXINE SODIUM
  12. DEPAKOTE ER (DIVALPROEX) [Concomitant]

REACTIONS (7)
  - Confusional state [None]
  - Exaggerated startle response [None]
  - Therapy cessation [None]
  - Feeling abnormal [None]
  - Paranoia [None]
  - Tremor [None]
  - Therapy change [None]

NARRATIVE: CASE EVENT DATE: 20170612
